FAERS Safety Report 17100222 (Version 2)
Quarter: 2019Q4

REPORT INFORMATION
  Report Type: Spontaneous
  Country: US (occurrence: US)
  Receive Date: 20191202
  Receipt Date: 20191210
  Transmission Date: 20200122
  Serious: Yes (Hospitalization)
  Sender: FDA-Public Use
  Company Number: US-AMNEAL PHARMACEUTICALS-2019-AMRX-02879

PATIENT
  Age: 48 Year
  Sex: Female
  Weight: 106 kg

DRUGS (21)
  1. CALCITE D [Concomitant]
     Active Substance: CALCIUM CARBONATE
     Indication: SUPPLEMENTATION THERAPY
     Dosage: 500/600 MG, BID
     Route: 048
     Dates: start: 201801
  2. ACETAMINOPHEN. [Concomitant]
     Active Substance: ACETAMINOPHEN
     Indication: MIGRAINE
     Dosage: UNK
     Route: 048
     Dates: start: 20160825
  3. LIDOCAINE. [Concomitant]
     Active Substance: LIDOCAINE
     Indication: DIABETIC NEUROPATHY
     Dosage: 4 PERCENT, TID
     Route: 061
     Dates: start: 20190411
  4. LYRICA [Concomitant]
     Active Substance: PREGABALIN
     Indication: DIABETIC NEUROPATHY
     Dosage: 50 MILLIGRAM, QD
     Route: 048
     Dates: start: 20190503, end: 20190610
  5. LYRICA [Concomitant]
     Active Substance: PREGABALIN
     Dosage: 150 MILLIGRAM, BID
     Route: 048
     Dates: start: 20190610
  6. AMITRIPTYLINE [Concomitant]
     Active Substance: AMITRIPTYLINE
     Indication: INSOMNIA
     Dosage: UNK
     Route: 065
     Dates: start: 20190503, end: 20190628
  7. ACTIVELLA [Suspect]
     Active Substance: ESTRADIOL\NORETHINDRONE ACETATE
     Indication: ENDOMETRIOSIS
     Dosage: 1 TABLETS, QD
     Route: 048
     Dates: start: 20181025
  8. VITAMIN D [ERGOCALCIFEROL] [Concomitant]
     Active Substance: ERGOCALCIFEROL
     Dosage: 2000 INTERNATIONAL UNIT, BID
     Route: 048
     Dates: start: 20190418
  9. VISTARIL [Concomitant]
     Active Substance: HYDROXYZINE PAMOATE
     Indication: ANXIETY
     Dosage: 25 MILLIGRAM, TID
     Route: 048
     Dates: start: 201311
  10. VICTOZA [Concomitant]
     Active Substance: LIRAGLUTIDE
     Indication: TYPE 2 DIABETES MELLITUS
     Dosage: 2.6 INTERNATIONAL UNIT, QD
     Route: 048
     Dates: start: 20160315
  11. ELAGOLIX [Suspect]
     Active Substance: ELAGOLIX
     Indication: ENDOMETRIOSIS
     Dosage: 2 TABLETS, QD
     Route: 048
     Dates: start: 20191025
  12. ACETAMINOPHEN. [Concomitant]
     Active Substance: ACETAMINOPHEN
     Indication: ENDOMETRIOSIS
     Dosage: 250 MILLIGRAM, AS REQUIRED
     Route: 048
     Dates: start: 20160825, end: 20170922
  13. VITAMIN D [ERGOCALCIFEROL] [Concomitant]
     Active Substance: ERGOCALCIFEROL
     Indication: VITAMIN D DEFICIENCY
     Dosage: 50000, Q7D
     Route: 048
     Dates: start: 20171007, end: 201712
  14. LISINOPRIL. [Concomitant]
     Active Substance: LISINOPRIL
     Dosage: 10 MILLIGRAM, BID
     Route: 048
     Dates: start: 20190404
  15. KEFLEX [Concomitant]
     Active Substance: CEPHALEXIN
     Indication: PYELONEPHRITIS
     Dosage: UNK
     Route: 065
     Dates: start: 20191006, end: 20191016
  16. MOTRIN [Concomitant]
     Active Substance: IBUPROFEN
     Indication: ENDOMETRIOSIS
     Dosage: UNK
     Route: 048
     Dates: start: 201302, end: 201407
  17. MOTRIN [Concomitant]
     Active Substance: IBUPROFEN
     Indication: MIGRAINE
     Dosage: 800 MILLIGRAM, AS REQUIRED
     Route: 048
     Dates: start: 20161121
  18. LISINOPRIL. [Concomitant]
     Active Substance: LISINOPRIL
     Indication: HYPERTENSION
     Dosage: 10 MILLIGRAM, QD
     Route: 048
     Dates: start: 2013, end: 20190403
  19. LANTUS [Concomitant]
     Active Substance: INSULIN GLARGINE
     Indication: DIABETES MELLITUS
     Dosage: 150 INTERNATIONAL UNIT, QD
     Route: 058
     Dates: start: 201311
  20. GABAPENTIN. [Concomitant]
     Active Substance: GABAPENTIN
     Indication: DIABETIC NEUROPATHY
     Dosage: 6 PERCENT, TID
     Route: 061
     Dates: start: 20190411
  21. PRILOSEC [Concomitant]
     Active Substance: OMEPRAZOLE MAGNESIUM
     Indication: GASTROOESOPHAGEAL REFLUX DISEASE
     Dosage: 20 MILLIGRAM, AS REQUIRED
     Route: 048
     Dates: start: 20160827

REACTIONS (1)
  - Seizure [Not Recovered/Not Resolved]

NARRATIVE: CASE EVENT DATE: 20191014
